FAERS Safety Report 7072232-8 (Version None)
Quarter: 2010Q4

REPORT INFORMATION
  Report Type: 
  Country: None (occurrence: None)
  Receive Date: 20101029
  Receipt Date: 20091224
  Transmission Date: 20110411
  Serious: No
  Sender: FDA-Public Use
  Company Number: A0836725A

PATIENT
  Sex: Female

DRUGS (1)
  1. ADVAIR DISKUS 100/50 [Suspect]
     Indication: PRODUCT USED FOR UNKNOWN INDICATION
     Route: 065
     Dates: start: 20091223

REACTIONS (3)
  - ACNE [None]
  - CANDIDIASIS [None]
  - COUGH [None]
